FAERS Safety Report 23912302 (Version 2)
Quarter: 2024Q2

REPORT INFORMATION
  Report Type: Spontaneous
  Country: JP (occurrence: None)
  Receive Date: 20240528
  Receipt Date: 20240625
  Transmission Date: 20240716
  Serious: Yes (Death, Hospitalization)
  Sender: FDA-Public Use
  Company Number: 2024A017950

PATIENT
  Age: 77 Year
  Sex: Male
  Weight: 46 kg

DRUGS (9)
  1. IMJUDO [Suspect]
     Active Substance: TREMELIMUMAB\TREMELIMUMAB-ACTL
     Indication: Hepatocellular carcinoma
     Route: 041
     Dates: start: 20231215, end: 20231215
  2. IMFINZI [Suspect]
     Active Substance: DURVALUMAB
     Indication: Hepatocellular carcinoma
     Route: 041
     Dates: start: 20231215, end: 20231215
  3. LACTULOSE [Concomitant]
     Active Substance: LACTULOSE
     Route: 048
     Dates: start: 20231122, end: 20240220
  4. AMINO ACIDS, SOURCE UNSPECIFIED [Concomitant]
     Active Substance: AMINO ACIDS, SOURCE UNSPECIFIED
     Route: 048
     Dates: start: 20231122, end: 20240220
  5. RIFAXIMIN [Concomitant]
     Active Substance: RIFAXIMIN
     Route: 048
     Dates: start: 20231124, end: 20240220
  6. LASIX [Concomitant]
     Active Substance: FUROSEMIDE
     Route: 048
     Dates: start: 20200828, end: 20240220
  7. URSODIOL [Concomitant]
     Active Substance: URSODIOL
     Route: 048
     Dates: start: 20200824, end: 20240220
  8. VONOPRAZAN FUMARATE [Concomitant]
     Active Substance: VONOPRAZAN FUMARATE
     Route: 048
     Dates: start: 20200824, end: 20240220
  9. SPIRONOLACTONE [Concomitant]
     Active Substance: SPIRONOLACTONE
     Route: 048
     Dates: start: 20200828, end: 20240220

REACTIONS (4)
  - Pneumonia [Fatal]
  - Pleural effusion [Fatal]
  - Diarrhoea [Recovered/Resolved]
  - Dehydration [Recovered/Resolved]

NARRATIVE: CASE EVENT DATE: 20231226
